FAERS Safety Report 19782873 (Version 1)
Quarter: 2021Q3

REPORT INFORMATION
  Report Type: Report from Study
  Country: GB (occurrence: GB)
  Receive Date: 20210903
  Receipt Date: 20210903
  Transmission Date: 20211014
  Serious: Yes (Other)
  Sender: FDA-Public Use
  Company Number: GB-AUROBINDO-AUR-APL-2021-036894

PATIENT
  Age: 37 Year
  Sex: Female

DRUGS (7)
  1. AZATHIOPRINE. [Suspect]
     Active Substance: AZATHIOPRINE
     Indication: STIFF PERSON SYNDROME
     Dosage: UNK
     Route: 065
  2. DIAZEPAM. [Suspect]
     Active Substance: DIAZEPAM
     Dosage: 10 MILLIGRAM, ONCE A DAY
     Route: 065
  3. GABAPENTIN. [Suspect]
     Active Substance: GABAPENTIN
     Indication: MUSCLE SPASMS
     Dosage: 2700 MILLIGRAM, ONCE A DAY
     Route: 065
  4. GABAPENTIN. [Suspect]
     Active Substance: GABAPENTIN
     Dosage: 500 MILLIGRAM, ONCE A DAY
     Route: 065
  5. IMMUNOGLOBULIN (IMMUNOGLOBULIN NOS) [Suspect]
     Active Substance: IMMUNE GLOBULIN NOS
     Indication: STIFF PERSON SYNDROME
     Dosage: UNK
     Route: 042
  6. RITUXIMAB. [Suspect]
     Active Substance: RITUXIMAB
     Indication: STIFF PERSON SYNDROME
     Dosage: UNK
     Route: 065
  7. DIAZEPAM. [Suspect]
     Active Substance: DIAZEPAM
     Indication: STIFF PERSON SYNDROME
     Dosage: 30 MILLIGRAM, ONCE A DAY
     Route: 065

REACTIONS (1)
  - Treatment failure [Unknown]
